FAERS Safety Report 9466263 (Version 1)
Quarter: 2013Q3

REPORT INFORMATION
  Report Type: Spontaneous
  Country: CH (occurrence: CH)
  Receive Date: 20130820
  Receipt Date: 20130820
  Transmission Date: 20140515
  Serious: Yes (Other)
  Sender: FDA-Public Use
  Company Number: CH-PFIZER INC-2013239432

PATIENT
  Age: 55 Year
  Sex: Male

DRUGS (1)
  1. XANAX [Suspect]
     Indication: EMOTIONAL DISTRESS
     Dosage: UNK
     Route: 048
     Dates: start: 2003

REACTIONS (3)
  - Drug abuse [Unknown]
  - Delirium [Unknown]
  - Fall [Unknown]
